FAERS Safety Report 10090278 (Version 5)
Quarter: 2014Q2

REPORT INFORMATION
  Report Type: Spontaneous
  Country: JP (occurrence: JP)
  Receive Date: 20140421
  Receipt Date: 20140602
  Transmission Date: 20141212
  Serious: Yes (Death)
  Sender: FDA-Public Use
  Company Number: PHHY2014JP004769

PATIENT
  Sex: Female

DRUGS (6)
  1. GILENYA [Suspect]
     Indication: MULTIPLE SCLEROSIS
     Dosage: 0.5 MG, QD
     Route: 048
     Dates: start: 20140107, end: 20140110
  2. BAYASPIRIN [Concomitant]
     Indication: CEREBRAL INFARCTION
     Dosage: 100 MG, QD
     Route: 048
  3. CRESTOR [Concomitant]
     Dosage: 2.5 MG, QD
     Route: 048
  4. GASTER [Concomitant]
     Route: 048
  5. NU LOTAN [Concomitant]
     Dosage: 25 MG, QD
     Route: 048
  6. NEXIUM//ESOMEPRAZOLE MAGNESIUM [Concomitant]
     Dosage: 20 MG, QD
     Route: 048

REACTIONS (1)
  - Completed suicide [Fatal]
